FAERS Safety Report 10463712 (Version 3)
Quarter: 2015Q2

REPORT INFORMATION
  Report Type: Report from Study
  Country: US (occurrence: US)
  Receive Date: 20140919
  Receipt Date: 20150512
  Transmission Date: 20150821
  Serious: Yes (Other)
  Sender: FDA-Public Use
  Company Number: PHEH2014US018133

PATIENT
  Sex: Male
  Weight: 107.4 kg

DRUGS (6)
  1. PAXIL [Concomitant]
     Active Substance: PAROXETINE HYDROCHLORIDE
     Indication: DEPRESSION
     Dosage: 40 MG, QD
     Route: 048
  2. TOPROL XL [Concomitant]
     Active Substance: METOPROLOL SUCCINATE
     Indication: HYPERTENSION
     Dosage: 25 MG, QD
     Route: 048
  3. GLEEVEC [Suspect]
     Active Substance: IMATINIB MESYLATE
     Indication: GASTROINTESTINAL STROMAL TUMOUR
     Dosage: 400 MG, QD
     Route: 048
  4. SULAR [Concomitant]
     Active Substance: NISOLDIPINE
     Indication: HYPERTENSION
     Dosage: 4.25 MG, QD
     Route: 048
  5. LOPID [Concomitant]
     Active Substance: GEMFIBROZIL
     Indication: HIGH DENSITY LIPOPROTEIN
     Dosage: 600 MG, BID
     Route: 048
  6. PROTONIX [Concomitant]
     Active Substance: PANTOPRAZOLE SODIUM
     Indication: GASTROOESOPHAGEAL REFLUX DISEASE
     Dosage: 40 MG, QD
     Route: 048

REACTIONS (8)
  - Infection [Unknown]
  - Blood urine present [Unknown]
  - Sarcoma [Unknown]
  - Nephrolithiasis [Unknown]
  - Cardiovascular disorder [Unknown]
  - Bladder cancer [Unknown]
  - Iodine allergy [Recovered/Resolved]
  - Second primary malignancy [Unknown]
